FAERS Safety Report 14678201 (Version 2)
Quarter: 2018Q3

REPORT INFORMATION
  Report Type: Spontaneous
  Country: US (occurrence: US)
  Receive Date: 20180326
  Receipt Date: 20180828
  Transmission Date: 20181010
  Serious: Yes (Other)
  Sender: FDA-Public Use
  Company Number: US-009507513-1803USA009477

PATIENT
  Age: 61 Year
  Sex: Female

DRUGS (1)
  1. KEYTRUDA [Suspect]
     Active Substance: PEMBROLIZUMAB
     Indication: THYMIC CANCER METASTATIC
     Dosage: UNK

REACTIONS (3)
  - Hepatitis B reactivation [Unknown]
  - Hepatitis acute [Unknown]
  - Off label use [Unknown]
